FAERS Safety Report 10617218 (Version 2)
Quarter: 2015Q3

REPORT INFORMATION
  Report Type: Spontaneous
  Country: US (occurrence: US)
  Receive Date: 20141201
  Receipt Date: 20150825
  Transmission Date: 20151125
  Serious: Yes (Other)
  Sender: FDA-Public Use
  Company Number: US-BAYER-2014-174840

PATIENT
  Age: 28 Year
  Sex: Female
  Weight: 68.27 kg

DRUGS (2)
  1. CLOTRIMAZOLE. [Concomitant]
     Active Substance: CLOTRIMAZOLE
     Dosage: 1 %, UNK
     Route: 061
     Dates: start: 20120306
  2. MIRENA [Suspect]
     Active Substance: LEVONORGESTREL
     Indication: CONTRACEPTION
     Dosage: 20 MCG/24HR, CONT
     Route: 015
     Dates: start: 20070508, end: 20120603

REACTIONS (8)
  - Device dislocation [None]
  - Pain [None]
  - Uterine perforation [None]
  - Medical device discomfort [None]
  - Post procedural discomfort [None]
  - Device difficult to use [None]
  - Procedural pain [Not Recovered/Not Resolved]
  - Injury [None]

NARRATIVE: CASE EVENT DATE: 200707
